FAERS Safety Report 16825683 (Version 1)
Quarter: 2019Q3

REPORT INFORMATION
  Report Type: Spontaneous
  Country: GB (occurrence: GB)
  Receive Date: 20190919
  Receipt Date: 20190919
  Transmission Date: 20191005
  Serious: Yes (Death)
  Sender: FDA-Public Use
  Company Number: GB-TEVA-2019-GB-1109069

PATIENT
  Age: 49 Year
  Sex: Female

DRUGS (18)
  1. PARAFFIN WHITE SOFT [Concomitant]
     Route: 061
  2. LIQUID PARAFFIN [Concomitant]
     Route: 061
  3. TACROLIMUS. [Suspect]
     Active Substance: TACROLIMUS
     Dosage: 2 MG
     Route: 048
  4. CLARITHROMYCIN. [Concomitant]
     Active Substance: CLARITHROMYCIN
     Dosage: 100 MG
     Route: 048
     Dates: end: 20190813
  5. CO-AMOXICLAV [Concomitant]
     Active Substance: AMOXICILLIN\CLAVULANATE POTASSIUM
     Dosage: 1000MG/200MG, 3.6 GRAM
     Route: 041
     Dates: end: 20190813
  6. PREDNISOLONE. [Suspect]
     Active Substance: PREDNISOLONE
     Dosage: IN THE MORNING, 25 MG
     Route: 048
  7. BIOXTRA [Concomitant]
     Route: 048
  8. DOXYCYCLINE. [Concomitant]
     Active Substance: DOXYCYCLINE
     Dosage: 400 MG
     Route: 048
     Dates: start: 20190815
  9. OMEPRAZOLE. [Concomitant]
     Active Substance: OMEPRAZOLE
     Dosage: IN THE MORNING, 40 MG
     Route: 048
  10. PIPERACILLIN AND TAZOBACTAM [Concomitant]
     Active Substance: PIPERACILLIN SODIUM\TAZOBACTAM SODIUM
     Dosage: PIPERACILLIN 4G / TAZOBACTAM 500MG, 13.5 GRAM
     Route: 041
     Dates: start: 20190814
  11. AMLODIPINE [Concomitant]
     Active Substance: AMLODIPINE BESYLATE
     Dosage: 5 MILLIGRAM
     Route: 048
  12. VORICONAZOLE. [Concomitant]
     Active Substance: VORICONAZOLE
     Dosage: 800 MG
     Route: 041
     Dates: start: 20190814
  13. FLUCONAZOLE. [Concomitant]
     Active Substance: FLUCONAZOLE
     Dosage: IN THE MORNING, 50 MG
     Route: 048
     Dates: end: 20190815
  14. RAMIPRIL. [Concomitant]
     Active Substance: RAMIPRIL
     Dosage: 1.25 MG
     Route: 048
  15. CALCIUM AND COLECALCIFEROL [Concomitant]
     Dosage: 1.5G/400UNIT, 2 DOSAGE FORMS
     Route: 048
  16. PARACETAMOL [Concomitant]
     Active Substance: ACETAMINOPHEN
     Dosage: 2000 MG
     Route: 048
  17. DOCUSATE [Concomitant]
     Active Substance: DOCUSATE
     Dosage: 200 MG
     Route: 048
  18. COTRIMOXAZOLE [Concomitant]
     Active Substance: SULFAMETHOXAZOLE\TRIMETHOPRIM
     Dosage: IN THE MORNING 80MG/400MG
     Route: 048

REACTIONS (1)
  - Pneumonia [Fatal]

NARRATIVE: CASE EVENT DATE: 20190815
